FAERS Safety Report 11177089 (Version 1)
Quarter: 2015Q2

REPORT INFORMATION
  Report Type: Spontaneous
  Country: None (occurrence: US)
  Receive Date: 20150610
  Receipt Date: 20150610
  Transmission Date: 20150821
  Serious: No
  Sender: FDA-Public Use
  Company Number: US-TARO-2014TAR00440

PATIENT
  Sex: Female

DRUGS (7)
  1. KEPPRA [Suspect]
     Active Substance: LEVETIRACETAM
     Dosage: 2750 MG, 2X/DAY
  2. CLONAZEPAM. [Suspect]
     Active Substance: CLONAZEPAM
     Dosage: 2 MG, 3X/DAY
  3. ONFI [Suspect]
     Active Substance: CLOBAZAM
     Dosage: 20 MG, 2X/DAY
  4. DILANTIN [Suspect]
     Active Substance: PHENYTOIN
     Dosage: 125 MG, 3X/DAY
  5. ADDERALL XR [Suspect]
     Active Substance: AMPHETAMINE ASPARTATE\AMPHETAMINE SULFATE\DEXTROAMPHETAMINE SACCHARATE\DEXTROAMPHETAMINE SULFATE
     Dosage: 30 MG, 1X/DAY
  6. CLORAZEPATE DIPOTASSIUM TABLETS USP 3.75 MG [Suspect]
     Active Substance: CLORAZEPATE DIPOTASSIUM
     Dosage: 3.75 MG, 1X/DAY
  7. CLONIDINE. [Suspect]
     Active Substance: CLONIDINE
     Dosage: 0.3 MG, 1X/DAY

REACTIONS (1)
  - Constipation [Not Recovered/Not Resolved]
